FAERS Safety Report 18437642 (Version 1)
Quarter: 2020Q4

REPORT INFORMATION
  Report Type: Spontaneous
  Country: US (occurrence: US)
  Receive Date: 20201028
  Receipt Date: 20201028
  Transmission Date: 20210114
  Serious: No
  Sender: FDA-Public Use
  Company Number: US-SLATE RUN PHARMACEUTICALS-20US000304

PATIENT

DRUGS (8)
  1. MOXIFLOXACIN. [Suspect]
     Active Substance: MOXIFLOXACIN
     Indication: MYCOBACTERIAL INFECTION
     Dosage: UNK UNK, MORNING (TOGETHER WITH AZITHROMYCIN)
     Route: 065
  2. AZITHROMYCIN USP [Suspect]
     Active Substance: AZITHROMYCIN
     Dosage: UNK UNK, QD (ALL ANTIBIOTICS AT ONCE)
     Route: 065
  3. ETHAMBUTOL [Suspect]
     Active Substance: ETHAMBUTOL HYDROCHLORIDE
     Indication: MYCOBACTERIAL INFECTION
     Dosage: UNK UNK, QD (30 MINUTES AFTER RIFAMPIN)
     Route: 065
  4. AZITHROMYCIN USP [Suspect]
     Active Substance: AZITHROMYCIN
     Indication: MYCOBACTERIAL INFECTION
     Dosage: UNK UNK, MORNING (TOGETHER WITH MOXIFLOXACIN)
     Route: 065
  5. ETHAMBUTOL [Suspect]
     Active Substance: ETHAMBUTOL HYDROCHLORIDE
     Dosage: UNK UNK, QD (ALL ANTIBIOTICS AT ONCE)
     Route: 065
  6. MOXIFLOXACIN. [Suspect]
     Active Substance: MOXIFLOXACIN
     Dosage: UNK UNK, QD (ALL ANTIBIOTICS AT ONCE)
     Route: 065
  7. RIFAMPIN. [Suspect]
     Active Substance: RIFAMPIN
     Indication: MYCOBACTERIAL INFECTION
     Dosage: UNK UNK, QD (2 HOURS AFTER FIRST ANTIBIOTICS)
     Route: 065
  8. RIFAMPIN. [Suspect]
     Active Substance: RIFAMPIN
     Dosage: UNK UNK, QD (ALL ANTIBIOTICS AT ONCE)
     Route: 065

REACTIONS (1)
  - Nausea [Recovered/Resolved]
